FAERS Safety Report 7053047-3 (Version None)
Quarter: 2010Q4

REPORT INFORMATION
  Report Type: 
  Country: None (occurrence: None)
  Receive Date: 20101020
  Receipt Date: 20101008
  Transmission Date: 20110411
  Serious: Yes (Hospitalization, Other)
  Sender: FDA-Public Use
  Company Number: US-ELI_LILLY_AND_COMPANY-US200912000094

PATIENT
  Sex: Female

DRUGS (18)
  1. HUMALOG [Suspect]
     Indication: DIABETES MELLITUS
     Dosage: 35 U, DAILY (1/D)
     Dates: start: 20090930
  2. HUMALOG [Suspect]
     Dosage: UNK, AS NEEDED
     Dates: start: 20090930
  3. HUMALOG [Suspect]
     Dosage: 35 U, DAILY (1/D)
  4. HUMALOG [Suspect]
     Dosage: UNK, AS NEEDED
  5. LANTUS [Concomitant]
  6. HYZAAR [Concomitant]
     Dosage: UNK, DAILY (1/D)
  7. SALAGEN [Concomitant]
     Dosage: UNK, DAILY (1/D)
  8. PLAVIX [Concomitant]
  9. ZETIA [Concomitant]
  10. MACRODANTIN [Concomitant]
     Dosage: 50 MG, DAILY (1/D)
  11. PROZAC [Concomitant]
     Dosage: 20 MG, DAILY (1/D)
  12. AMITRIPTYLINE HCL [Concomitant]
  13. BISOPROLOL [Concomitant]
     Dosage: 5 MG, DAILY (1/D)
  14. ASPIRIN [Concomitant]
     Dosage: 81 MG, DAILY (1/D)
  15. DETROL [Concomitant]
  16. LASIX [Concomitant]
  17. NOVOLOG [Concomitant]
     Dosage: 10 U, 3/D
  18. NEUROGEN-E [Concomitant]
     Route: 061

REACTIONS (17)
  - BALANCE DISORDER [None]
  - BLOOD GLUCOSE INCREASED [None]
  - CEREBROVASCULAR ACCIDENT [None]
  - CORONARY ARTERY DISEASE [None]
  - DRUG DOSE OMISSION [None]
  - DUODENITIS [None]
  - FATIGUE [None]
  - GASTRITIS [None]
  - HEMIPARESIS [None]
  - MITRAL VALVE INCOMPETENCE [None]
  - MITRAL VALVE PROLAPSE [None]
  - NAUSEA [None]
  - OESOPHAGITIS [None]
  - PERIPHERAL VASCULAR DISORDER [None]
  - PYELONEPHRITIS [None]
  - SENSORY LOSS [None]
  - STENT PLACEMENT [None]
